FAERS Safety Report 13963268 (Version 1)
Quarter: 2017Q3

REPORT INFORMATION
  Report Type: Spontaneous
  Country: US (occurrence: None)
  Receive Date: 20170913
  Receipt Date: 20170913
  Transmission Date: 20171128
  Serious: Yes (Death)
  Sender: FDA-Public Use
  Company Number: None

PATIENT
  Age: 81 Year
  Sex: Male

DRUGS (22)
  1. VOLTAREN [Concomitant]
     Active Substance: DICLOFENAC SODIUM
  2. DOCUSATE SOD [Concomitant]
  3. MULTI VITAMIN [Concomitant]
     Active Substance: VITAMINS
  4. IMPRAM HCL [Concomitant]
  5. VIVOTIF BERN [Concomitant]
  6. VENTOLIN HFA [Concomitant]
     Active Substance: ALBUTEROL SULFATE
  7. ATORVASTATIN [Concomitant]
     Active Substance: ATORVASTATIN
  8. SUCRALFATE. [Concomitant]
     Active Substance: SUCRALFATE
  9. NITROSTAT [Concomitant]
     Active Substance: NITROGLYCERIN
  10. FLUTICASONE. [Concomitant]
     Active Substance: FLUTICASONE
  11. OMEPRAZOLE. [Concomitant]
     Active Substance: OMEPRAZOLE
  12. VITAMIN D3 [Concomitant]
     Active Substance: CHOLECALCIFEROL
  13. NORCO [Concomitant]
     Active Substance: ACETAMINOPHEN\HYDROCODONE BITARTRATE
  14. CHLOROPHYLL [Concomitant]
  15. MIRALAX [Concomitant]
     Active Substance: POLYETHYLENE GLYCOL 3350
  16. TAMSULOSIN [Concomitant]
     Active Substance: TAMSULOSIN
  17. GABAPENTIN. [Concomitant]
     Active Substance: GABAPENTIN
  18. ESBRIET [Suspect]
     Active Substance: PIRFENIDONE
     Indication: IDIOPATHIC PULMONARY FIBROSIS
     Route: 048
     Dates: start: 201601, end: 20170904
  19. VITAMIN C [Concomitant]
     Active Substance: ASCORBIC ACID
  20. BENEFIBER [Concomitant]
     Active Substance: STARCH, WHEAT
  21. MUPIROCIN. [Concomitant]
     Active Substance: MUPIROCIN
  22. ASPIRIN. [Concomitant]
     Active Substance: ASPIRIN

REACTIONS (1)
  - Death [None]

NARRATIVE: CASE EVENT DATE: 20170904
